FAERS Safety Report 12387530 (Version 3)
Quarter: 2016Q3

REPORT INFORMATION
  Report Type: Spontaneous
  Country: JP (occurrence: JP)
  Receive Date: 20160520
  Receipt Date: 20160910
  Transmission Date: 20161109
  Serious: Yes (Death, Life-Threatening, Other)
  Sender: FDA-Public Use
  Company Number: JP-AMGEN-JPNSP2016059819

PATIENT
  Age: 81 Year
  Sex: Male
  Weight: 63.2 kg

DRUGS (5)
  1. LOCOID [Concomitant]
     Active Substance: HYDROCORTISONE BUTYRATE
     Dosage: UNK
     Route: 062
     Dates: start: 20160426
  2. VECTIBIX [Suspect]
     Active Substance: PANITUMUMAB
     Indication: METASTASES TO LIVER
     Dosage: UNK
     Route: 041
  3. MINOMYCIN [Concomitant]
     Active Substance: MINOCYCLINE HYDROCHLORIDE
     Dosage: 340 UNK, QD
     Route: 048
     Dates: start: 20160426
  4. VECTIBIX [Suspect]
     Active Substance: PANITUMUMAB
     Indication: COLON CANCER
     Dosage: 340 MG, Q2WK
     Route: 041
     Dates: start: 20160426, end: 20160426
  5. MYSER [Concomitant]
     Active Substance: DIFLUPREDNATE
     Dosage: UNK
     Route: 062
     Dates: start: 20160426

REACTIONS (4)
  - Hepatic failure [Fatal]
  - Infusion related reaction [Recovered/Resolved]
  - Condition aggravated [Fatal]
  - Jaundice [Fatal]

NARRATIVE: CASE EVENT DATE: 20160426
